FAERS Safety Report 10395634 (Version 1)
Quarter: 2014Q1

REPORT INFORMATION
  Report Type: Spontaneous
  Country: US (occurrence: None)
  Receive Date: 20130705
  Receipt Date: 20130705
  Transmission Date: 20141002
  Serious: Yes (Hospitalization)
  Sender: FDA-Public Use
  Company Number: RB-44355-2012

PATIENT
  Age: 28 Year
  Sex: Female

DRUGS (3)
  1. SUBOXONE [Suspect]
     Indication: PRODUCT USED FOR UNKNOWN INDICATION
     Dates: start: 20110630, end: 20120513
  2. BUPRENORPHINE 8 MG (NONE) [Suspect]
     Indication: PRODUCT USED FOR UNKNOWN INDICATION
     Dates: start: 20120509
  3. ZOLOFT [Suspect]
     Indication: DEPRESSION
     Dates: start: 20120124

REACTIONS (1)
  - Exposure during pregnancy [None]
